FAERS Safety Report 7432208-5 (Version None)
Quarter: 2011Q2

REPORT INFORMATION
  Report Type: 
  Country: None (occurrence: None)
  Receive Date: 20110422
  Receipt Date: 20110406
  Transmission Date: 20111010
  Serious: No
  Sender: FDA-Public Use
  Company Number: US-B.I. PHARMACEUTICALS,INC./RIDGEFIELD-2011-BP-10181BP

PATIENT
  Sex: Male

DRUGS (7)
  1. SIMVASTATIN [Concomitant]
     Indication: BLOOD CHOLESTEROL INCREASED
     Dosage: 40 MG
  2. HUMULIN R [Concomitant]
     Indication: DIABETES MELLITUS
  3. DIGOXIN [Concomitant]
     Dosage: 0.25 MG
  4. LOTENSIN HCT [Concomitant]
     Indication: HYPERTENSION
  5. REGULAR INSULIN [Concomitant]
     Indication: DIABETES MELLITUS
  6. GLUCOPHAGE [Concomitant]
     Indication: DIABETES MELLITUS
     Dosage: 750 MG
  7. PRADAXA [Suspect]
     Indication: HEART RATE IRREGULAR
     Dosage: 300 MG
     Route: 048
     Dates: start: 20110301

REACTIONS (1)
  - ARTERIAL OCCLUSIVE DISEASE [None]
